FAERS Safety Report 5904863-X (Version None)
Quarter: 2008Q4

REPORT INFORMATION
  Report Type: 
  Country: None (occurrence: None)
  Receive Date: 20081001
  Receipt Date: 20080925
  Transmission Date: 20090506
  Serious: Yes (Hospitalization)
  Sender: FDA-Public Use
  Company Number: A0749231A

PATIENT
  Age: 55 Year
  Sex: Male

DRUGS (7)
  1. LAMICTAL [Suspect]
     Dosage: 100MG TWICE PER DAY
     Route: 048
     Dates: start: 20050901, end: 20080923
  2. VALTREX [Suspect]
     Indication: ANTIVIRAL PROPHYLAXIS
     Dosage: 500MG PER DAY
     Route: 048
     Dates: start: 20080916, end: 20080923
  3. CHEMOTHERAPY [Suspect]
     Dates: start: 20080916
  4. LEVAQUIN [Suspect]
  5. RITOXIN [Concomitant]
  6. PREDNISONE [Concomitant]
  7. BENADRYL [Concomitant]

REACTIONS (9)
  - BRONCHITIS [None]
  - CONVULSIONS LOCAL [None]
  - DEPRESSED LEVEL OF CONSCIOUSNESS [None]
  - INTENTIONAL DRUG MISUSE [None]
  - PNEUMONIA [None]
  - PYREXIA [None]
  - RASH GENERALISED [None]
  - SECRETION DISCHARGE [None]
  - TREMOR [None]
